FAERS Safety Report 5914972-7 (Version None)
Quarter: 2008Q4

REPORT INFORMATION
  Report Type: 
  Country: None (occurrence: None)
  Receive Date: 20081010
  Receipt Date: 20081002
  Transmission Date: 20090506
  Serious: Yes (Other)
  Sender: FDA-Public Use
  Company Number: US-PURDUE-USA_2008_0034514

PATIENT
  Sex: Female

DRUGS (8)
  1. OXYCONTIN [Suspect]
     Indication: PAIN
     Dosage: 80 MG, Q6H
     Route: 048
     Dates: start: 19970113, end: 20010201
  2. VIOXX [Concomitant]
     Indication: DRUG USE FOR UNKNOWN INDICATION
     Dosage: 23 MG, DAILY
     Route: 048
  3. VENTOLIN [Concomitant]
     Indication: DRUG USE FOR UNKNOWN INDICATION
     Dosage: UNK, UNK
  4. FLOVENT [Concomitant]
     Indication: DRUG USE FOR UNKNOWN INDICATION
     Dosage: UNK, UNK
  5. PRILOSEC [Concomitant]
     Indication: DRUG USE FOR UNKNOWN INDICATION
     Dosage: 20 MG, UNK
     Route: 048
  6. COZAAR [Concomitant]
     Indication: DRUG USE FOR UNKNOWN INDICATION
     Dosage: 50 MG, UNK
     Route: 048
  7. AMBIEN [Concomitant]
     Indication: DRUG USE FOR UNKNOWN INDICATION
     Dosage: 10 MG, UNK
     Route: 048
  8. PARLODEL [Concomitant]
     Indication: DRUG USE FOR UNKNOWN INDICATION
     Dosage: 2.5 MG, UNK

REACTIONS (17)
  - ABDOMINAL DISTENSION [None]
  - ABDOMINAL PAIN [None]
  - CHILLS [None]
  - COLD SWEAT [None]
  - CONFUSIONAL STATE [None]
  - CONSTIPATION [None]
  - DISTURBANCE IN ATTENTION [None]
  - DIZZINESS [None]
  - DUODENAL ULCER [None]
  - FATIGUE [None]
  - HAEMATOCHEZIA [None]
  - HEADACHE [None]
  - IRRITABILITY [None]
  - MALAISE [None]
  - MEMORY IMPAIRMENT [None]
  - NAUSEA [None]
  - VOMITING [None]
